FAERS Safety Report 8286480-2 (Version None)
Quarter: 2012Q2

REPORT INFORMATION
  Report Type: 
  Country: None (occurrence: None)
  Receive Date: 20120416
  Receipt Date: 20120410
  Transmission Date: 20120825
  Serious: Yes (Hospitalization, Other)
  Sender: FDA-Public Use
  Company Number: US-PFIZER INC-2011278254

PATIENT
  Sex: Female

DRUGS (3)
  1. DILANTIN [Suspect]
     Dosage: 300 MG, 1X/DAY (100MG, 3CAPS @ BEDTIME)
  2. ZOLOFT [Suspect]
     Dosage: 50 MG, 1X/DAY
  3. XANAX [Suspect]
     Dosage: UNK

REACTIONS (5)
  - HEAD INJURY [None]
  - CONVULSION [None]
  - MEMORY IMPAIRMENT [None]
  - ANXIETY [None]
  - DEPRESSION [None]
